FAERS Safety Report 9167428 (Version 1)
Quarter: 2013Q1

REPORT INFORMATION
  Report Type: Spontaneous
  Country: GB (occurrence: None)
  Receive Date: 20130307
  Receipt Date: 20130307
  Transmission Date: 20140127
  Serious: Yes (Other)
  Sender: FDA-Public Use
  Company Number: 2013-03122

PATIENT
  Age: 40 Year
  Sex: Female
  Weight: 69 kg

DRUGS (3)
  1. LAMOTRIGINE [Suspect]
     Indication: EPILEPSY
     Route: 048
     Dates: start: 200911
  2. PROPRANOLOL HYDROCHLORIDE [Suspect]
     Indication: PANIC ATTACK
     Dates: start: 200811, end: 201105
  3. CIPRALEX (ESCITALOPRAM OXALATE) [Concomitant]

REACTIONS (5)
  - Acne pustular [None]
  - Weight increased [None]
  - Mood swings [None]
  - Social avoidant behaviour [None]
  - Self esteem decreased [None]
